FAERS Safety Report 18252233 (Version 1)
Quarter: 2020Q3

REPORT INFORMATION
  Report Type: Spontaneous
  Country: US (occurrence: US)
  Receive Date: 20200910
  Receipt Date: 20200910
  Transmission Date: 20201103
  Serious: No
  Sender: FDA-Public Use
  Company Number: US-FARMAPROD-202005-0716

PATIENT
  Sex: Female

DRUGS (16)
  1. ESCITALOPRAM OXALATE. [Concomitant]
     Active Substance: ESCITALOPRAM OXALATE
  2. QUETIAPINE FUMARATE. [Concomitant]
     Active Substance: QUETIAPINE FUMARATE
  3. DULOXETINE HCL [Concomitant]
     Active Substance: DULOXETINE HYDROCHLORIDE
  4. LEVEMIR [Concomitant]
     Active Substance: INSULIN DETEMIR
  5. BACLOFEN. [Concomitant]
     Active Substance: BACLOFEN
  6. OXERVATE [Suspect]
     Active Substance: CENEGERMIN-BKBJ
     Indication: NEUROTROPHIC KERATOPATHY
     Route: 047
     Dates: start: 20200512
  7. REWETTING [Concomitant]
  8. MIRTAZAPINE. [Concomitant]
     Active Substance: MIRTAZAPINE
  9. ATORVASTATIN CALCIUM. [Concomitant]
     Active Substance: ATORVASTATIN CALCIUM
  10. VITAMINE B?12 [Concomitant]
  11. MYRBETRIQ [Concomitant]
     Active Substance: MIRABEGRON
  12. LISINOPRIL. [Concomitant]
     Active Substance: LISINOPRIL
  13. PREDNISOLONE. [Concomitant]
     Active Substance: PREDNISOLONE
  14. HUMALOG [Concomitant]
     Active Substance: INSULIN LISPRO
  15. VITAMIN D3 [Concomitant]
     Active Substance: CHOLECALCIFEROL
  16. JANUVIA [Concomitant]
     Active Substance: SITAGLIPTIN PHOSPHATE

REACTIONS (2)
  - Ocular hyperaemia [Unknown]
  - Eye pain [Unknown]
